FAERS Safety Report 7552998-0 (Version None)
Quarter: 2011Q2

REPORT INFORMATION
  Report Type: 
  Country: None (occurrence: None)
  Receive Date: 20110616
  Receipt Date: 20110614
  Transmission Date: 20111010
  Serious: Yes (Life-Threatening, Hospitalization)
  Sender: FDA-Public Use
  Company Number: US-ALLERGAN-1103179US

PATIENT
  Age: 64 Year
  Sex: Female

DRUGS (8)
  1. BOTOX [Suspect]
     Dosage: UNK UNITS
     Route: 030
     Dates: start: 20101119, end: 20101119
  2. ACIPHEX [Concomitant]
     Indication: GASTROOESOPHAGEAL REFLUX DISEASE
     Dosage: UNK
     Route: 048
     Dates: start: 20081010
  3. BOTOX [Suspect]
     Dosage: UNK UNITS
     Route: 030
     Dates: start: 20100126, end: 20100126
  4. BOTOX [Suspect]
     Dosage: UNK UNITS
     Route: 030
     Dates: start: 20100820, end: 20100820
  5. HYDROCORTISONE [Concomitant]
     Indication: PRODUCT USED FOR UNKNOWN INDICATION
     Dosage: 0.2 MG, QD
     Route: 048
     Dates: start: 20090824
  6. BOTOX [Suspect]
     Dosage: UNK UNITS Q 3 MONTHS
     Dates: start: 20091006, end: 20091006
  7. PANTOPRAZOLE [Concomitant]
     Indication: PRODUCT USED FOR UNKNOWN INDICATION
     Dosage: 40 MG, QD
     Route: 048
     Dates: start: 20090824
  8. BOTOX [Suspect]
     Indication: TORTICOLLIS
     Dosage: 240 UNITS, SINGLE
     Route: 030
     Dates: start: 20110218, end: 20110218

REACTIONS (1)
  - RESPIRATORY ARREST [None]
